FAERS Safety Report 7323465-4 (Version None)
Quarter: 2011Q1

REPORT INFORMATION
  Report Type: 
  Country: None (occurrence: None)
  Receive Date: 20110301
  Receipt Date: 20110217
  Transmission Date: 20110831
  Serious: Yes (Other)
  Sender: FDA-Public Use
  Company Number: US-ACTELION-A-NJ2011-44792

PATIENT

DRUGS (13)
  1. POTASSIUM [Concomitant]
  2. VICODIN [Concomitant]
  3. ASPIRIN [Concomitant]
  4. THEOPHYLLINE [Concomitant]
  5. SILDENAFIL [Concomitant]
  6. BUMETANIDE [Concomitant]
  7. AMITRIPTYLINE [Concomitant]
  8. SEROQUEL [Concomitant]
  9. ATORVASTATIN [Concomitant]
  10. NITROGLYCERIN [Concomitant]
  11. TRACLEER [Suspect]
     Indication: PULMONARY ARTERIAL HYPERTENSION
     Dosage: 62.5 MG, BID
     Route: 048
     Dates: start: 20110112, end: 20110201
  12. CLOPIDOGREL [Concomitant]
  13. FAMOTIDINE [Concomitant]

REACTIONS (5)
  - DYSPNOEA [None]
  - SCROTAL OEDEMA [None]
  - HYPOXIA [None]
  - CONDITION AGGRAVATED [None]
  - OEDEMA PERIPHERAL [None]
